FAERS Safety Report 19426336 (Version 2)
Quarter: 2021Q3

REPORT INFORMATION
  Report Type: Spontaneous
  Country: US (occurrence: US)
  Receive Date: 20210617
  Receipt Date: 20210713
  Transmission Date: 20211014
  Serious: Yes (Hospitalization, Other)
  Sender: FDA-Public Use
  Company Number: US-AUROBINDO-AUR-APL-2021-024730

PATIENT
  Age: 16 Month
  Sex: Female

DRUGS (1)
  1. IBUPROFEN. [Suspect]
     Active Substance: IBUPROFEN
     Indication: PRODUCT USED FOR UNKNOWN INDICATION
     Dosage: UNK
     Route: 065

REACTIONS (8)
  - Somnolence [Recovered/Resolved]
  - Pneumonia aspiration [Recovered/Resolved]
  - Gastritis [Recovered/Resolved]
  - Pneumonia streptococcal [Recovered/Resolved]
  - Device related infection [Recovered/Resolved]
  - Mental status changes [Recovered/Resolved]
  - Accidental overdose [Recovered/Resolved]
  - Metabolic acidosis [Recovered/Resolved]
